FAERS Safety Report 4865761-6 (Version None)
Quarter: 2005Q4

REPORT INFORMATION
  Report Type: 
  Country: None (occurrence: None)
  Receive Date: 20051223
  Receipt Date: 20051216
  Transmission Date: 20060501
  Serious: Yes (Hospitalization)
  Sender: FDA-Public Use
  Company Number: PHHO2005GB19777

PATIENT
  Age: 67 Year
  Sex: Male

DRUGS (3)
  1. NEORAL [Suspect]
     Indication: RENAL TRANSPLANT
     Dosage: UNK, UNK
     Dates: start: 20051020
  2. PREDNISOLONE [Suspect]
     Indication: RENAL TRANSPLANT
     Route: 048
     Dates: start: 20051212
  3. PREDNISOLONE [Suspect]
     Dosage: UNK, UNK
     Route: 048

REACTIONS (4)
  - BLOOD CALCIUM INCREASED [None]
  - CALCIUM METABOLISM DISORDER [None]
  - WOUND DEHISCENCE [None]
  - WOUND TREATMENT [None]
